FAERS Safety Report 17336738 (Version 1)
Quarter: 2020Q1

REPORT INFORMATION
  Report Type: Spontaneous
  Country: US (occurrence: US)
  Receive Date: 20200128
  Receipt Date: 20200128
  Transmission Date: 20200409
  Serious: Yes (Hospitalization)
  Sender: FDA-Public Use
  Company Number: US-MYLANLABS-2020M1009631

PATIENT
  Age: 63 Year
  Sex: Male
  Weight: 113 kg

DRUGS (9)
  1. HEPARIN [Concomitant]
     Active Substance: HEPARIN SODIUM
     Indication: PRODUCT USED FOR UNKNOWN INDICATION
     Dosage: 5000 UNITS/H
     Route: 042
  2. ADENOSINE. [Suspect]
     Active Substance: ADENOSINE
     Indication: ACCELERATED IDIOVENTRICULAR RHYTHM
     Dosage: 12 MILLIGRAM TOTAL
     Route: 042
  3. LIDOCAINE. [Suspect]
     Active Substance: LIDOCAINE
     Indication: ACCELERATED IDIOVENTRICULAR RHYTHM
     Dosage: 100 MILLIGRAM
     Route: 042
  4. ASPIRIN                            /00002701/ [Concomitant]
     Active Substance: ASPIRIN
     Indication: CHEST PAIN
     Dosage: CHEWABLE TABLET
     Route: 048
  5. NITROGLYCERIN. [Concomitant]
     Active Substance: NITROGLYCERIN
     Indication: CHEST PAIN
     Dosage: TWO DOSES
     Route: 060
  6. TICAGRELOR. [Concomitant]
     Active Substance: TICAGRELOR
     Indication: PRODUCT USED FOR UNKNOWN INDICATION
     Dosage: 180 MILLIGRAM
     Route: 048
  7. HEPARIN [Concomitant]
     Active Substance: HEPARIN SODIUM
     Dosage: 1000 UNITS/H
     Route: 042
  8. ADENOSINE. [Suspect]
     Active Substance: ADENOSINE
     Dosage: 18 MILLIGRAM TOTAL
     Route: 042
  9. AMIODARONE [Suspect]
     Active Substance: AMIODARONE
     Indication: ACCELERATED IDIOVENTRICULAR RHYTHM
     Dosage: 300 MILLIGRAM
     Route: 042

REACTIONS (1)
  - Therapy non-responder [Unknown]
